FAERS Safety Report 24278148 (Version 3)
Quarter: 2024Q4

REPORT INFORMATION
  Report Type: Report from Study
  Country: AT (occurrence: AT)
  Receive Date: 20240903
  Receipt Date: 20241004
  Transmission Date: 20250115
  Serious: Yes (Hospitalization)
  Sender: ALNYLAM PHARMACEUTICALS
  Company Number: AT-ALNYLAM PHARMACEUTICALS, INC.-ALN-2024-004860

PATIENT

DRUGS (5)
  1. ONPATTRO [Suspect]
     Active Substance: PATISIRAN SODIUM
     Indication: Hereditary neuropathic amyloidosis
     Dosage: 20 MILLIGRAM, Q3W (20)
     Route: 042
     Dates: start: 20191001, end: 20191001
  2. ONPATTRO [Suspect]
     Active Substance: PATISIRAN SODIUM
     Dosage: 20 MILLIGRAM, Q3W (20)
     Route: 042
     Dates: start: 20191223, end: 20191223
  3. ONPATTRO [Suspect]
     Active Substance: PATISIRAN SODIUM
     Dosage: 20 MILLIGRAM, Q3W (20)
     Route: 042
     Dates: start: 20240807, end: 20240807
  4. NEURONTIN [Concomitant]
     Active Substance: GABAPENTIN
     Indication: Pain
     Dosage: 300 MILLIGRAM, BID
     Route: 048
  5. CIPRALEX [Concomitant]
     Active Substance: ESCITALOPRAM OXALATE
     Indication: Antidepressant therapy
     Dosage: 10 MILLIGRAM, QD
     Route: 048

REACTIONS (2)
  - Confusional state [Unknown]
  - Paranoia [Unknown]
